FAERS Safety Report 5707618-4 (Version None)
Quarter: 2008Q2

REPORT INFORMATION
  Report Type: 
  Country: None (occurrence: None)
  Receive Date: 20080407
  Receipt Date: 20070309
  Transmission Date: 20081010
  Serious: Yes (Hospitalization)
  Sender: FDA-Public Use
  Company Number: DSA_29517_2007

PATIENT
  Sex: Female

DRUGS (6)
  1. CARDIZEM LA [Suspect]
     Indication: ARTERIAL SPASM
     Dosage: (180 MG QD ORAL)
     Route: 048
     Dates: start: 20070222
  2. CARDIZEM LA [Suspect]
     Indication: HYPERTENSION
     Dosage: (180 MG QD ORAL)
     Route: 048
     Dates: start: 20070222
  3. DILTIAZEM HCL [Suspect]
     Indication: DRUG USE FOR UNKNOWN INDICATION
     Dosage: (240 MG QD)
  4. CLONIDINE [Concomitant]
  5. CLONIDINE [Concomitant]
  6. SYNTHROID [Concomitant]

REACTIONS (8)
  - ASTHENIA [None]
  - EXTRASYSTOLES [None]
  - FLUSHING [None]
  - HEART RATE INCREASED [None]
  - NAUSEA [None]
  - NIGHTMARE [None]
  - TREMOR [None]
  - WRONG TECHNIQUE IN DRUG USAGE PROCESS [None]
